FAERS Safety Report 13277016 (Version 1)
Quarter: 2017Q1

REPORT INFORMATION
  Report Type: Spontaneous
  Country: US (occurrence: US)
  Receive Date: 20170228
  Receipt Date: 20170228
  Transmission Date: 20170428
  Serious: Yes (Hospitalization)
  Sender: FDA-Public Use
  Company Number: None

PATIENT
  Sex: Male

DRUGS (3)
  1. ALPRAZOLAM. [Suspect]
     Active Substance: ALPRAZOLAM
  2. MORPHINE [Suspect]
     Active Substance: MORPHINE
  3. ACETAMINOPHEN-OXYCODONE 5/325 [Suspect]
     Active Substance: ACETAMINOPHEN\OXYCODONE HYDROCHLORIDE

REACTIONS (2)
  - Respiratory distress [None]
  - Unresponsive to stimuli [None]

NARRATIVE: CASE EVENT DATE: 20150408
